FAERS Safety Report 7737376-3 (Version None)
Quarter: 2011Q3

REPORT INFORMATION
  Report Type: 
  Country: None (occurrence: None)
  Receive Date: 20110908
  Receipt Date: 20110131
  Transmission Date: 20111222
  Serious: No
  Sender: FDA-Public Use
  Company Number: US-BAYER-2011-013611

PATIENT

DRUGS (1)
  1. EOVIST [Suspect]
     Dosage: DAILY DOSE 10 ML

REACTIONS (1)
  - DRUG INEFFECTIVE [None]
